FAERS Safety Report 20633455 (Version 2)
Quarter: 2022Q2

REPORT INFORMATION
  Report Type: Spontaneous
  Country: US (occurrence: US)
  Receive Date: 20220324
  Receipt Date: 20220517
  Transmission Date: 20220721
  Serious: Yes (Death)
  Sender: FDA-Public Use
  Company Number: US-REDHILL BIOPHARMA-2022RDH00052

PATIENT
  Sex: Male
  Weight: 134.69 kg

DRUGS (17)
  1. MOVANTIK [Suspect]
     Active Substance: NALOXEGOL OXALATE
     Indication: Constipation
     Dosage: 25 MG, 1X/DAY
     Route: 048
     Dates: start: 20210914, end: 20211110
  2. TESTOSTERONE [Concomitant]
     Active Substance: TESTOSTERONE
  3. KLONOPIN [Concomitant]
     Active Substance: CLONAZEPAM
  4. LEXAPRO [Concomitant]
     Active Substance: ESCITALOPRAM OXALATE
  5. NALOXONE [Concomitant]
     Active Substance: NALOXONE
  6. VASOTEC [Concomitant]
     Active Substance: ENALAPRIL MALEATE
  7. LINZESS [Concomitant]
     Active Substance: LINACLOTIDE
  8. INSULIN NOS [Concomitant]
     Active Substance: INSULIN NOS
  9. DILAUDID PUMP [Concomitant]
  10. LASIX [Concomitant]
     Active Substance: FUROSEMIDE
  11. VICTOZA [Concomitant]
     Active Substance: LIRAGLUTIDE
  12. METFORMIN [Concomitant]
     Active Substance: METFORMIN HYDROCHLORIDE
  13. ADVIL [Concomitant]
     Active Substance: IBUPROFEN
  14. FLOMAX [Concomitant]
     Active Substance: TAMSULOSIN HYDROCHLORIDE
  15. NEXIUM [Concomitant]
     Active Substance: ESOMEPRAZOLE MAGNESIUM
  16. VITAMIN D [Concomitant]
     Active Substance: VITAMIN D NOS
  17. ASPIRIN [Concomitant]
     Active Substance: ASPIRIN

REACTIONS (1)
  - Death [Fatal]
